FAERS Safety Report 22907216 (Version 3)
Quarter: 2023Q4

REPORT INFORMATION
  Report Type: Spontaneous
  Country: US (occurrence: US)
  Receive Date: 20230905
  Receipt Date: 20231208
  Transmission Date: 20240109
  Serious: No
  Sender: FDA-Public Use
  Company Number: US-Calliditas-2023CAL01087

PATIENT
  Age: 70 Year
  Sex: Female
  Weight: 50.8 kg

DRUGS (2)
  1. TARPEYO [Suspect]
     Active Substance: BUDESONIDE
     Indication: IgA nephropathy
     Dosage: 16 MG (4 MG CAPSULES) ONCE DAILY
     Route: 048
     Dates: start: 20230215
  2. VITAMINS [Concomitant]
     Active Substance: VITAMINS

REACTIONS (7)
  - Fatigue [Not Recovered/Not Resolved]
  - Swelling face [Not Recovered/Not Resolved]
  - Blood glucose increased [Recovered/Resolved]
  - Blood cholesterol increased [Recovered/Resolved]
  - Sleep disorder [Not Recovered/Not Resolved]
  - Blood triglycerides increased [Not Recovered/Not Resolved]
  - Glycosylated haemoglobin increased [Not Recovered/Not Resolved]

NARRATIVE: CASE EVENT DATE: 20230401
